FAERS Safety Report 24294052 (Version 1)
Quarter: 2024Q3

REPORT INFORMATION
  Report Type: Spontaneous
  Country: US (occurrence: None)
  Receive Date: 20240906
  Receipt Date: 20240906
  Transmission Date: 20241016
  Serious: No
  Sender: DOMPE FARMACEUTICI
  Company Number: US-FARMAPROD-202404-1180

PATIENT
  Sex: Female

DRUGS (18)
  1. OXERVATE [Suspect]
     Active Substance: CENEGERMIN-BKBJ
     Indication: Neurotrophic keratopathy
     Route: 047
     Dates: start: 20240325
  2. OXERVATE [Suspect]
     Active Substance: CENEGERMIN-BKBJ
  3. VITAMIN B COMPLEX [Concomitant]
     Active Substance: CYANOCOBALAMIN\DEXPANTHENOL\NIACINAMIDE\PYRIDOXINE HYDROCHLORIDE\RIBOFLAVIN 5^-PHOSPHATE SODIUM\THIA
  4. PRED FORTE [Concomitant]
     Active Substance: PREDNISOLONE ACETATE
  5. FLUOXETINE HYDROCHLORIDE [Concomitant]
     Active Substance: FLUOXETINE HYDROCHLORIDE
  6. VITAMIN K2 (MENAQUINONE-4) [Concomitant]
  7. UNISOM SLEEPTABS [Concomitant]
     Active Substance: DOXYLAMINE SUCCINATE
  8. LISINOPRIL [Concomitant]
     Active Substance: LISINOPRIL
  9. RESTASIS [Concomitant]
     Active Substance: CYCLOSPORINE
  10. FISH OIL [Concomitant]
     Active Substance: FISH OIL
     Dosage: 100-160 MG
  11. IPRATROPIUM BROMIDE [Concomitant]
     Active Substance: IPRATROPIUM BROMIDE\IPRATROPIUM BROMIDE ANHYDROUS
  12. VITAMIN C [Concomitant]
     Active Substance: ASCORBIC ACID
  13. DULOXETINE HYDROCHLORIDE [Concomitant]
     Active Substance: DULOXETINE HYDROCHLORIDE
  14. ZETIA [Concomitant]
     Active Substance: EZETIMIBE
  15. COSOPT [Concomitant]
     Active Substance: DORZOLAMIDE HYDROCHLORIDE\TIMOLOL MALEATE
     Dosage: 22.3-6.8/1
  16. VITAMIN D3 [Concomitant]
     Active Substance: CHOLECALCIFEROL
  17. CETIRIZINE HCL [Concomitant]
     Active Substance: CETIRIZINE HYDROCHLORIDE
  18. CALCIUM ASCORBATE [Concomitant]
     Active Substance: CALCIUM ASCORBATE

REACTIONS (3)
  - Inappropriate schedule of product administration [Unknown]
  - Eyelid pain [Unknown]
  - Product dose omission issue [Unknown]
